FAERS Safety Report 25093715 (Version 1)
Quarter: 2025Q1

REPORT INFORMATION
  Report Type: Spontaneous
  Country: JP (occurrence: JP)
  Receive Date: 20250319
  Receipt Date: 20250319
  Transmission Date: 20250408
  Serious: Yes (Other)
  Sender: GLAXOSMITHKLINE
  Company Number: JP-GSK-JP2025JPN029927

PATIENT

DRUGS (3)
  1. SERETIDE [Suspect]
     Active Substance: FLUTICASONE PROPIONATE\SALMETEROL XINAFOATE
  2. SERETIDE [Suspect]
     Active Substance: FLUTICASONE PROPIONATE\SALMETEROL XINAFOATE
  3. MONTELUKAST [Concomitant]
     Active Substance: MONTELUKAST

REACTIONS (11)
  - Eosinophilic granulomatosis with polyangiitis [Unknown]
  - Cutaneous vasculitis [Unknown]
  - Abdominal pain [Unknown]
  - Myalgia [Unknown]
  - Pain in extremity [Unknown]
  - Oedema peripheral [Unknown]
  - Purpura [Unknown]
  - Hypoaesthesia [Unknown]
  - Asthma [Unknown]
  - Overdose [Unknown]
  - Off label use [Unknown]
